FAERS Safety Report 9744254 (Version 1)
Quarter: 2013Q4

REPORT INFORMATION
  Report Type: Spontaneous
  Country: US (occurrence: US)
  Receive Date: 20131210
  Receipt Date: 20131210
  Transmission Date: 20140711
  Serious: No
  Sender: FDA-Public Use
  Company Number: US-BIOGENIDEC-2013BI102112

PATIENT
  Age: 66 Year
  Sex: Female

DRUGS (10)
  1. TECFIDERA [Suspect]
     Indication: MULTIPLE SCLEROSIS
     Route: 048
     Dates: start: 201307
  2. TECFIDERA [Suspect]
     Indication: MULTIPLE SCLEROSIS
     Route: 048
     Dates: start: 201307
  3. ABILIFY [Concomitant]
  4. COUMADIN [Concomitant]
  5. DOCUSATE SODIUM [Concomitant]
  6. DITROPAN [Concomitant]
  7. CYMBALTA [Concomitant]
  8. ULTRAM [Concomitant]
  9. NEURONTIN [Concomitant]
  10. BACLOFEN [Concomitant]

REACTIONS (2)
  - Fatigue [Not Recovered/Not Resolved]
  - Musculoskeletal stiffness [Not Recovered/Not Resolved]
